FAERS Safety Report 7027176-4 (Version None)
Quarter: 2010Q4

REPORT INFORMATION
  Report Type: 
  Country: None (occurrence: None)
  Receive Date: 20101004
  Receipt Date: 20100917
  Transmission Date: 20110411
  Serious: No
  Sender: FDA-Public Use
  Company Number: US-PFIZER INC-2009308956

PATIENT
  Sex: Male
  Weight: 81.633 kg

DRUGS (8)
  1. VIAGRA [Suspect]
     Indication: ERECTILE DYSFUNCTION
     Dosage: 50 MG, AS NEEDED
     Route: 048
     Dates: start: 20070101, end: 20100901
  2. VIAGRA [Suspect]
     Dosage: 100 MG, UNK
  3. PREDNISONE [Concomitant]
     Indication: ENDOCRINE GLAND OPERATION
     Dosage: 5 MG, DAILY
  4. PREDNISONE [Concomitant]
     Dosage: UNK
  5. SYNTHROID [Concomitant]
     Indication: ENDOCRINE GLAND OPERATION
     Dosage: 0.08 MG, UNK
     Route: 048
  6. SYNTHROID [Concomitant]
     Dosage: UNK
  7. LIPITOR [Concomitant]
     Indication: BLOOD CHOLESTEROL INCREASED
     Dosage: 10 MG, 1X/DAY
     Route: 048
  8. DEPO-TESTOSTERONE [Concomitant]
     Indication: ENDOCRINE GLAND OPERATION
     Dosage: UNK

REACTIONS (1)
  - DRUG INEFFECTIVE [None]
